FAERS Safety Report 8530025-6 (Version None)
Quarter: 2012Q3

REPORT INFORMATION
  Report Type: 
  Country: None (occurrence: None)
  Receive Date: 20120723
  Receipt Date: 20120717
  Transmission Date: 20120928
  Serious: Yes (Hospitalization, Other)
  Sender: FDA-Public Use
  Company Number: PHEH2007US03406

PATIENT
  Sex: Male

DRUGS (31)
  1. AREDIA [Suspect]
     Route: 042
  2. MORPHINE SULFATE [Concomitant]
  3. TYLENOL [Concomitant]
  4. PRILOSEC [Concomitant]
  5. NEURONTIN [Concomitant]
  6. MUCINEX [Concomitant]
  7. INFLUENZA VIRUS VACCINE [Concomitant]
  8. LOPID [Concomitant]
  9. SUDAFED 12 HOUR [Concomitant]
  10. TESTIM [Concomitant]
  11. MULTIPLE VITAMINS [Concomitant]
  12. METAMUCIL-2 [Concomitant]
     Dosage: 0.52 G
  13. ASPIRIN [Concomitant]
  14. ANDROGEL [Concomitant]
  15. HYDROCORTISONE [Concomitant]
  16. EFFEXOR XR [Concomitant]
  17. WELLBUTRIN XL [Concomitant]
  18. OXYCODONE HCL [Concomitant]
  19. ATIVAN [Concomitant]
  20. REVLIMID [Concomitant]
  21. DECADRON [Concomitant]
  22. ZOMETA [Suspect]
     Indication: MULTIPLE MYELOMA
     Route: 042
  23. PREDNISONE TAB [Concomitant]
  24. TRAZODONE HYDROCHLORIDE [Concomitant]
  25. FISH OIL [Concomitant]
     Dosage: 500 MG
  26. LEXAPRO [Concomitant]
  27. DEPO-TESTOSTERONE [Concomitant]
  28. ZOLOFT [Concomitant]
  29. PROPRANOLOL [Concomitant]
  30. DOXYCYCLINE [Concomitant]
  31. THORAZINE [Concomitant]

REACTIONS (92)
  - POIKILOCYTOSIS [None]
  - SQUAMOUS CELL CARCINOMA [None]
  - THROMBOCYTOSIS [None]
  - OEDEMA PERIPHERAL [None]
  - URTICARIA [None]
  - CHEST DISCOMFORT [None]
  - DEPRESSION [None]
  - NAUSEA [None]
  - DYSPNOEA [None]
  - VOMITING [None]
  - OROPHARYNGEAL SWELLING [None]
  - UMBILICAL HERNIA [None]
  - ABDOMINAL WALL HAEMATOMA [None]
  - FISTULA [None]
  - EMPHYSEMA [None]
  - LUMBAR SPINAL STENOSIS [None]
  - ADRENAL DISORDER [None]
  - INTERVERTEBRAL DISC PROTRUSION [None]
  - NOCTURIA [None]
  - HYPERCHOLESTEROLAEMIA [None]
  - FATIGUE [None]
  - SOFT TISSUE DISORDER [None]
  - COUGH [None]
  - ERECTILE DYSFUNCTION [None]
  - BACK PAIN [None]
  - PLEURAL EFFUSION [None]
  - NEUROPATHY PERIPHERAL [None]
  - ABDOMINAL PAIN [None]
  - HEPATIC STEATOSIS [None]
  - MYELODYSPLASTIC SYNDROME [None]
  - DYSTROPHIC CALCIFICATION [None]
  - SEBORRHOEIC KERATOSIS [None]
  - PRIMARY HYPOGONADISM [None]
  - WEIGHT DECREASED [None]
  - DYSPEPSIA [None]
  - OEDEMA MOUTH [None]
  - SWELLING [None]
  - MILIA [None]
  - PAROTID DUCT OBSTRUCTION [None]
  - BACTERIAL INFECTION [None]
  - OSTEONECROSIS OF JAW [None]
  - GENERAL PHYSICAL HEALTH DETERIORATION [None]
  - ANXIETY [None]
  - ANAEMIA [None]
  - INTERVERTEBRAL DISC DEGENERATION [None]
  - PAIN IN JAW [None]
  - OSTEOPENIA [None]
  - MUSCLE STRAIN [None]
  - HEADACHE [None]
  - SIALOADENITIS [None]
  - SPLENOMEGALY [None]
  - DEEP VEIN THROMBOSIS [None]
  - SPINAL OSTEOARTHRITIS [None]
  - FRACTURED SACRUM [None]
  - COMPRESSION FRACTURE [None]
  - PERITONEAL DISORDER [None]
  - OSTEOLYSIS [None]
  - OSTEOMYELITIS [None]
  - KYPHOSIS [None]
  - HYPERTRIGLYCERIDAEMIA [None]
  - INFLAMMATION [None]
  - PANCYTOPENIA [None]
  - MOUTH HAEMORRHAGE [None]
  - HYPERPLASIA [None]
  - BLOOD LACTATE DEHYDROGENASE INCREASED [None]
  - PUPILS UNEQUAL [None]
  - HERPES ZOSTER [None]
  - ARTERIOSCLEROSIS CORONARY ARTERY [None]
  - PNEUMONIA [None]
  - FEBRILE NEUTROPENIA [None]
  - DECREASED INTEREST [None]
  - OSTEONECROSIS [None]
  - METASTASES TO BONE [None]
  - CANCER PAIN [None]
  - BONE DISORDER [None]
  - HYPERKERATOSIS [None]
  - VERTEBRAL FORAMINAL STENOSIS [None]
  - ESSENTIAL TREMOR [None]
  - STRESS [None]
  - VIRAL UPPER RESPIRATORY TRACT INFECTION [None]
  - ATELECTASIS [None]
  - PAIN [None]
  - PLASMACYTOSIS [None]
  - FACET JOINT SYNDROME [None]
  - CLOSTRIDIUM DIFFICILE COLITIS [None]
  - EPICONDYLITIS [None]
  - BONE LESION [None]
  - ANOGENITAL WARTS [None]
  - LUNG NEOPLASM [None]
  - POST HERPETIC NEURALGIA [None]
  - FLATULENCE [None]
  - ACANTHOSIS [None]
